FAERS Safety Report 12563228 (Version 1)
Quarter: 2016Q3

REPORT INFORMATION
  Report Type: Spontaneous
  Country: US (occurrence: US)
  Receive Date: 20160715
  Receipt Date: 20160715
  Transmission Date: 20161109
  Serious: No
  Sender: FDA-Public Use
  Company Number: US-009507513-1606USA010998

PATIENT

DRUGS (3)
  1. ZEMURON [Suspect]
     Active Substance: ROCURONIUM BROMIDE
  2. ZETIA [Suspect]
     Active Substance: EZETIMIBE
     Route: 048
  3. ITRACONAZOLE. [Suspect]
     Active Substance: ITRACONAZOLE

REACTIONS (1)
  - Myopathy [Unknown]
